FAERS Safety Report 9611217 (Version 2)
Quarter: 2013Q4

REPORT INFORMATION
  Report Type: Report from Study
  Country: GR (occurrence: GR)
  Receive Date: 20131009
  Receipt Date: 20131216
  Transmission Date: 20140711
  Serious: Yes (Life-Threatening, Hospitalization)
  Sender: FDA-Public Use
  Company Number: GR-PFIZER INC-2013285826

PATIENT
  Age: 72 Year
  Sex: Male
  Weight: 75 kg

DRUGS (9)
  1. TEMSIROLIMUS [Suspect]
     Indication: PANCREATIC CARCINOMA METASTATIC
     Dosage: 25 MG, WEEKLY
     Route: 042
     Dates: start: 20130711, end: 20130829
  2. GEMZAR [Suspect]
     Indication: PANCREATIC CARCINOMA METASTATIC
     Dosage: 1850 MG, CYCLIC (EVERY TWO WEEKS)
     Route: 042
     Dates: start: 20130711, end: 20130822
  3. ZOFRON [Concomitant]
     Indication: PREMEDICATION
     Dosage: 8 MG, EVERY THERAPY
     Route: 042
     Dates: start: 20130711, end: 20130829
  4. ZANTAC [Concomitant]
     Indication: PREMEDICATION
     Dosage: 50 MG, EVERY THERAPY
     Route: 042
     Dates: start: 20130711, end: 20130829
  5. FENISTIL [Concomitant]
     Indication: PREMEDICATION
     Dosage: 8 MG, EVERY THERAPY
     Route: 042
     Dates: start: 20130711, end: 20130829
  6. DEXAMETHASONE [Concomitant]
     Indication: PREMEDICATION
     Dosage: 4 MG, EVERY THERAPY
     Route: 042
     Dates: start: 20130711, end: 20130829
  7. SOTALOL [Concomitant]
     Indication: ARRHYTHMIA
     Dosage: 160 MG, 1/2X2
     Route: 048
  8. PANTOPRAZOLE [Concomitant]
     Indication: GASTROOESOPHAGEAL REFLUX DISEASE
     Dosage: 40 MG, 1X/DAY
     Route: 048
  9. PANTOPRAZOLE [Concomitant]
     Indication: OESOPHAGITIS

REACTIONS (1)
  - Pneumocystis jirovecii infection [Recovered/Resolved]
